FAERS Safety Report 23865667 (Version 3)
Quarter: 2024Q2

REPORT INFORMATION
  Report Type: Report from Study
  Country: EG (occurrence: EG)
  Receive Date: 20240517
  Receipt Date: 20240604
  Transmission Date: 20240716
  Serious: Yes (Hospitalization, Other)
  Sender: FDA-Public Use
  Company Number: EG-BoehringerIngelheim-2024-BI-027133

PATIENT
  Age: 43 Year
  Sex: Male

DRUGS (6)
  1. OFEV [Suspect]
     Active Substance: NINTEDANIB
     Indication: Pulmonary fibrosis
     Route: 048
     Dates: start: 20230603
  2. Solupred [Concomitant]
     Indication: Pulmonary fibrosis
     Dates: start: 202306
  3. KAST [Concomitant]
     Indication: Pulmonary fibrosis
     Dosage: AT NIGHT
     Dates: start: 202306
  4. OSTEOCARE [Concomitant]
     Active Substance: CALCIUM\CHOLECALCIFEROL\MAGNESIUM\ZINC
     Indication: Drug therapy
  5. PANTOPRAZOLE SODIUM [Concomitant]
     Active Substance: PANTOPRAZOLE SODIUM
     Indication: Abdominal pain upper
  6. PANTOPRAZOLE SODIUM [Concomitant]
     Active Substance: PANTOPRAZOLE SODIUM

REACTIONS (5)
  - Idiopathic pulmonary fibrosis [Not Recovered/Not Resolved]
  - Seizure [Not Recovered/Not Resolved]
  - Syncope [Not Recovered/Not Resolved]
  - Oxygen saturation decreased [Not Recovered/Not Resolved]
  - Drug ineffective [Not Recovered/Not Resolved]

NARRATIVE: CASE EVENT DATE: 20230603
